FAERS Safety Report 6414366-4 (Version None)
Quarter: 2009Q4

REPORT INFORMATION
  Report Type: 
  Country: None (occurrence: None)
  Receive Date: 20091021
  Receipt Date: 20091006
  Transmission Date: 20100525
  Serious: Yes (Hospitalization)
  Sender: FDA-Public Use
  Company Number: DSU-2009-02054

PATIENT
  Age: 52 Year
  Sex: Female

DRUGS (3)
  1. OLMESARTAN MEDOXOMIL [Suspect]
     Indication: HYPERTENSION
     Dosage: 10 MG (10 MG,QD), PER ORAL
     Route: 048
     Dates: start: 20090701, end: 20090101
  2. GLICLAZIDE (GLICLAZIDE)(GLICLAZIDE) [Concomitant]
  3. INSULIN (INSULIN) (INSULIN) [Concomitant]

REACTIONS (3)
  - BLOOD PRESSURE INCREASED [None]
  - ULCER [None]
  - URINARY TRACT INFECTION [None]
